FAERS Safety Report 5950348-4 (Version None)
Quarter: 2008Q4

REPORT INFORMATION
  Report Type: 
  Country: None (occurrence: None)
  Receive Date: 20081112
  Receipt Date: 20081104
  Transmission Date: 20090506
  Serious: Yes (Other)
  Sender: FDA-Public Use
  Company Number: PHHY2008DE20616

PATIENT
  Sex: Female

DRUGS (11)
  1. FEMARA [Suspect]
     Indication: BREAST CANCER
     Dosage: 1 DF DAILY
     Route: 048
  2. SIMVASTATIN [Suspect]
     Dosage: 20 MG, UNK
     Route: 048
  3. LEVOTHYROXINE SODIUM [Concomitant]
     Dosage: 50 UG, UNK
     Route: 048
  4. BISOPROLOL FUMARATE [Concomitant]
     Route: 048
  5. DIGITOXIN TAB [Concomitant]
     Dosage: 0.1 MG, UNK
     Route: 048
  6. MIRTAZAPINE [Concomitant]
     Dosage: 30 MG, UNK
     Route: 048
  7. VALPROIC ACID [Concomitant]
     Dosage: 600 MG, UNK
     Route: 048
  8. ASPIRIN [Concomitant]
     Dosage: 50 MG, UNK
     Route: 048
  9. FURORESE [Concomitant]
     Dosage: 125 MG, UNK
     Route: 048
  10. PALLADONE [Concomitant]
     Dosage: 8 MG, UNK
     Route: 048
  11. INSULIN [Concomitant]
     Dosage: UNK

REACTIONS (5)
  - GENERAL PHYSICAL HEALTH DETERIORATION [None]
  - LEUKAEMIA MONOCYTIC [None]
  - LEUKOPENIA [None]
  - MONOCYTOSIS [None]
  - NEUTROPENIA [None]
